FAERS Safety Report 26050753 (Version 1)
Quarter: 2025Q4

REPORT INFORMATION
  Report Type: Report from Study
  Country: CA (occurrence: CA)
  Receive Date: 20251116
  Receipt Date: 20251116
  Transmission Date: 20260118
  Serious: Yes (Hospitalization)
  Sender: ABBVIE
  Company Number: CA-ABBVIE-6546788

PATIENT
  Age: 32 Year
  Sex: Male

DRUGS (15)
  1. RINVOQ [Suspect]
     Active Substance: UPADACITINIB
     Indication: Crohn^s disease
     Dosage: FORM STRENGTH: 30MILLIGRAM
     Route: 048
     Dates: end: 202510
  2. RINVOQ [Suspect]
     Active Substance: UPADACITINIB
     Indication: Crohn^s disease
     Dosage: FORM STRENGTH: 30MILLIGRAM
     Route: 048
     Dates: start: 2025
  3. ACETAMINOPHEN [Concomitant]
     Active Substance: ACETAMINOPHEN
     Indication: Product used for unknown indication
     Dosage: AS NEEDED FORM STRENGTH: 500MILLIGRAM
     Route: 065
  4. VITAMIN D3 [Concomitant]
     Active Substance: CHOLECALCIFEROL
     Indication: Product used for unknown indication
     Dosage: 2,500 UNIT (62.5 MCG) TABLET - 5,000 UNITS DAILY, IN THE MORNING
     Route: 065
  5. FISH OIL [Concomitant]
     Active Substance: FISH OIL
     Indication: Product used for unknown indication
     Dosage: 1 CAPSULE DAILY, IN THE MORNING
  6. borage [Concomitant]
     Indication: Product used for unknown indication
     Dosage: 1 CAPSULE DAILY, IN THE MORNING
  7. FISH OIL [Concomitant]
     Active Substance: FISH OIL
     Indication: Product used for unknown indication
     Dosage: 1 CAPSULE DAILY, IN THE MORNING
     Route: 065
  8. flax [Concomitant]
     Indication: Product used for unknown indication
     Dosage: 1 CAPSULE DAILY IN THE MORNING
     Route: 065
  9. BUTYLSCOPOLAMINE BROMIDE [Concomitant]
     Active Substance: BUTYLSCOPOLAMINE BROMIDE
     Indication: Product used for unknown indication
     Dosage: FORM STRENGTH: 10MILLIGRAM ?AS NEEDED
     Route: 065
  10. LACTOBACILLUS ACIDOPHILUS [Concomitant]
     Active Substance: LACTOBACILLUS ACIDOPHILUS
     Indication: Product used for unknown indication
     Dosage: 1 CAPSULE DAILY, IN THE MORNING
     Route: 065
  11. LACTOBACILLUS RHAMNOSUS [Concomitant]
     Active Substance: LACTOBACILLUS RHAMNOSUS
     Indication: Product used for unknown indication
     Dosage: 1 CAPSULE DAILY, IN THE MORNING
     Route: 065
  12. BIFIDOBACTERIUM ANIMALIS LACTIS [Concomitant]
     Active Substance: BIFIDOBACTERIUM ANIMALIS LACTIS
     Indication: Product used for unknown indication
     Dosage: 1 CAPSULE DAILY, IN THE MORNING
     Route: 065
  13. PROBIOTICS NOS [Concomitant]
     Active Substance: PROBIOTICS NOS
     Indication: Product used for unknown indication
     Dosage: 1 CAPSULE DAILY, IN THE MORNING
     Route: 065
  14. ALBUTEROL [Concomitant]
     Active Substance: ALBUTEROL
     Indication: Product used for unknown indication
     Dosage: 100 MCG/ACTUATION INHALER - 2 PUFF 4 ?TIMES PER DAY, AS NEEDED
  15. vitamin C, [Concomitant]
     Indication: Product used for unknown indication
     Dosage: FORM STRENGTH: 500MILLIGRAM
     Route: 065

REACTIONS (7)
  - Diarrhoea haemorrhagic [Unknown]
  - Crohn^s disease [Unknown]
  - Feeling hot [Unknown]
  - Feeling cold [Unknown]
  - Terminal ileitis [Unknown]
  - Productive cough [Not Recovered/Not Resolved]
  - Pneumonia [Unknown]

NARRATIVE: CASE EVENT DATE: 20251110
